FAERS Safety Report 10283541 (Version 1)
Quarter: 2014Q3

REPORT INFORMATION
  Report Type: Spontaneous
  Country: DE (occurrence: None)
  Receive Date: 20140702
  Receipt Date: 20140702
  Transmission Date: 20150326
  Serious: Yes (Congenital Anomaly, Other)
  Sender: FDA-Public Use
  Company Number: AUR-APL-2014-06801

PATIENT
  Age: 24 Hour
  Sex: Male
  Weight: 2.9 kg

DRUGS (2)
  1. OLANZAPINE. [Suspect]
     Active Substance: OLANZAPINE
     Indication: ANXIETY DISORDER
     Route: 064
     Dates: start: 20120803, end: 20130424
  2. CEFUROXIME. [Concomitant]
     Active Substance: CEFUROXIME

REACTIONS (2)
  - Maternal drugs affecting foetus [None]
  - Hypospadias [None]

NARRATIVE: CASE EVENT DATE: 20130424
